FAERS Safety Report 6420867-5 (Version None)
Quarter: 2009Q4

REPORT INFORMATION
  Report Type: 
  Country: None (occurrence: None)
  Receive Date: 20091030
  Receipt Date: 20091014
  Transmission Date: 20100525
  Serious: Yes (Hospitalization)
  Sender: FDA-Public Use
  Company Number: US-JNJFOC-20091008833

PATIENT
  Age: 49 Year
  Sex: Female

DRUGS (8)
  1. ACETAMINOPHEN [Suspect]
  2. ACETAMINOPHEN [Suspect]
     Indication: DRUG USE FOR UNKNOWN INDICATION
  3. METHADONE [Suspect]
     Indication: DRUG USE FOR UNKNOWN INDICATION
  4. ULTRAM [Concomitant]
  5. ETHANOL [Concomitant]
  6. BENZODIAZEPINE NOS [Concomitant]
  7. VICODIN [Concomitant]
  8. HYDROCODONE [Concomitant]

REACTIONS (5)
  - BLOOD BILIRUBIN INCREASED [None]
  - HYPERREFLEXIA [None]
  - INTERNATIONAL NORMALISED RATIO INCREASED [None]
  - LIVER FUNCTION TEST ABNORMAL [None]
  - MULTIPLE DRUG OVERDOSE INTENTIONAL [None]
